FAERS Safety Report 9769624 (Version 2)
Quarter: 2013Q4

REPORT INFORMATION
  Report Type: Spontaneous
  Country: FR (occurrence: FR)
  Receive Date: 20131218
  Receipt Date: 20131230
  Transmission Date: 20140711
  Serious: Yes (Life-Threatening, Other)
  Sender: FDA-Public Use
  Company Number: FR-UCBSA-105694

PATIENT
  Age: 53 Year
  Sex: Male

DRUGS (3)
  1. VIMPAT [Suspect]
     Indication: TOXICITY TO VARIOUS AGENTS
     Dosage: UNKNOWN DOSE
     Route: 048
     Dates: start: 20130927, end: 20130927
  2. ETOMIDATE [Concomitant]
  3. DIPRIVAN [Concomitant]
     Dates: end: 2013

REACTIONS (8)
  - Bundle branch block [Recovered/Resolved]
  - Suicide attempt [Unknown]
  - Toxicity to various agents [Unknown]
  - Confusional state [Unknown]
  - Somnolence [Unknown]
  - Agitation [Unknown]
  - Hypoxia [Unknown]
  - Nystagmus [Unknown]
